FAERS Safety Report 7111198-9 (Version None)
Quarter: 2010Q4

REPORT INFORMATION
  Report Type: 
  Country: None (occurrence: None)
  Receive Date: 20101118
  Receipt Date: 20101115
  Transmission Date: 20110411
  Serious: Yes (Death)
  Sender: FDA-Public Use
  Company Number: US-CEPHALON-2010004438

PATIENT
  Sex: Female
  Weight: 52 kg

DRUGS (1)
  1. TREANDA [Suspect]
     Indication: B-CELL LYMPHOMA
     Route: 042
     Dates: start: 20100109, end: 20100618

REACTIONS (2)
  - LUNG INFILTRATION [None]
  - SEPSIS [None]
